FAERS Safety Report 15959614 (Version 2)
Quarter: 2019Q1

REPORT INFORMATION
  Report Type: Spontaneous
  Country: US (occurrence: US)
  Receive Date: 20190214
  Receipt Date: 20190305
  Transmission Date: 20190417
  Serious: No
  Sender: FDA-Public Use
  Company Number: US-AMGEN-USASP2019021013

PATIENT
  Age: 82 Year
  Sex: Female

DRUGS (1)
  1. PROLIA [Suspect]
     Active Substance: DENOSUMAB
     Indication: OSTEOPOROSIS PROPHYLAXIS
     Dosage: 60 MG, UNK
     Route: 065
     Dates: start: 2017

REACTIONS (7)
  - Arthralgia [Not Recovered/Not Resolved]
  - Mobility decreased [Unknown]
  - Pain in extremity [Unknown]
  - Neck pain [Unknown]
  - Groin pain [Not Recovered/Not Resolved]
  - Back pain [Recovering/Resolving]
  - Asthenia [Not Recovered/Not Resolved]

NARRATIVE: CASE EVENT DATE: 201808
